FAERS Safety Report 23654836 (Version 1)
Quarter: 2024Q1

REPORT INFORMATION
  Report Type: Spontaneous
  Country: US (occurrence: None)
  Receive Date: 20240320
  Receipt Date: 20240320
  Transmission Date: 20240410
  Serious: Yes (Hospitalization)
  Sender: FDA-Public Use
  Company Number: None

PATIENT
  Age: 3 Year
  Sex: Female

DRUGS (1)
  1. BOTOX COSMETIC [Suspect]
     Active Substance: ONABOTULINUMTOXINA
     Indication: Niemann-Pick disease
     Dosage: 100MG 3 TIMES DAILY ORAL?
     Route: 048
     Dates: start: 202012

REACTIONS (4)
  - Monoplegia [None]
  - Pain [None]
  - Joint injection [None]
  - Osteomyelitis [None]

NARRATIVE: CASE EVENT DATE: 20240223
